FAERS Safety Report 18607254 (Version 1)
Quarter: 2020Q4

REPORT INFORMATION
  Report Type: Spontaneous
  Country: US (occurrence: US)
  Receive Date: 20201211
  Receipt Date: 20201211
  Transmission Date: 20210114
  Serious: No
  Sender: FDA-Public Use
  Company Number: US-EISAI MEDICAL RESEARCH-EC-2020-084019

PATIENT
  Age: 48 Year
  Sex: Male

DRUGS (1)
  1. DAYVIGO [Suspect]
     Active Substance: LEMBOREXANT
     Indication: INSOMNIA
     Route: 048
     Dates: start: 20201101, end: 20201101

REACTIONS (4)
  - Crying [Unknown]
  - Visual impairment [Unknown]
  - Hallucination, auditory [Unknown]
  - Panic attack [Unknown]

NARRATIVE: CASE EVENT DATE: 20201101
